FAERS Safety Report 9826202 (Version 1)
Quarter: 2014Q1

REPORT INFORMATION
  Report Type: Spontaneous
  Country: US (occurrence: US)
  Receive Date: 20140117
  Receipt Date: 20140117
  Transmission Date: 20141002
  Serious: No
  Sender: FDA-Public Use
  Company Number: US-009507513-1401USA006030

PATIENT
  Age: 32 Year
  Sex: Female
  Weight: 113.38 kg

DRUGS (1)
  1. NEXPLANON [Suspect]
     Indication: CONTRACEPTION
     Dosage: STANDARD
     Route: 059
     Dates: start: 20131202

REACTIONS (11)
  - Suicidal ideation [Not Recovered/Not Resolved]
  - Chills [Not Recovered/Not Resolved]
  - Feeling abnormal [Not Recovered/Not Resolved]
  - Menopausal symptoms [Not Recovered/Not Resolved]
  - Hyperhidrosis [Not Recovered/Not Resolved]
  - Body temperature fluctuation [Not Recovered/Not Resolved]
  - Hot flush [Not Recovered/Not Resolved]
  - Nausea [Not Recovered/Not Resolved]
  - Diarrhoea [Not Recovered/Not Resolved]
  - Menstruation delayed [Not Recovered/Not Resolved]
  - Menorrhagia [Not Recovered/Not Resolved]
